FAERS Safety Report 5689993-2 (Version None)
Quarter: 2008Q2

REPORT INFORMATION
  Report Type: 
  Country: None (occurrence: None)
  Receive Date: 20080401
  Receipt Date: 20070928
  Transmission Date: 20081010
  Serious: No
  Sender: FDA-Public Use
  Company Number: A0685003A

PATIENT
  Age: 25 Year
  Sex: Male

DRUGS (5)
  1. FLOVENT [Suspect]
     Indication: ASTHMA
     Dosage: 2PUFF UNKNOWN
     Route: 055
  2. VENTOLIN [Suspect]
     Indication: BRONCHOSPASM
     Dosage: 2PUFF UNKNOWN
     Route: 055
  3. PROAIR HFA [Concomitant]
  4. ALBUTEROL [Concomitant]
  5. PREDNISONE TAB [Concomitant]

REACTIONS (3)
  - DRUG INEFFECTIVE [None]
  - OVERDOSE [None]
  - THERAPEUTIC RESPONSE DECREASED [None]
